FAERS Safety Report 11934009 (Version 1)
Quarter: 2016Q1

REPORT INFORMATION
  Report Type: Spontaneous
  Country: PL (occurrence: PL)
  Receive Date: 20160121
  Receipt Date: 20160121
  Transmission Date: 20160526
  Serious: Yes (Other)
  Sender: FDA-Public Use
  Company Number: PHHY2016PL006059

PATIENT
  Age: 46 Year
  Sex: Female

DRUGS (7)
  1. LETROZOLE. [Suspect]
     Active Substance: LETROZOLE
     Indication: METASTASES TO STOMACH
  2. METHOTREXATE [Concomitant]
     Active Substance: METHOTREXATE
     Indication: PRODUCT USED FOR UNKNOWN INDICATION
     Route: 065
  3. LETROZOLE. [Suspect]
     Active Substance: LETROZOLE
     Indication: BREAST CANCER METASTATIC
     Route: 065
  4. TAMOXIFEN [Concomitant]
     Active Substance: TAMOXIFEN
     Indication: BREAST CANCER METASTATIC
     Route: 065
  5. DOCETAXEL. [Concomitant]
     Active Substance: DOCETAXEL
     Indication: BREAST CANCER METASTATIC
     Route: 065
  6. CYCLOPHOSPHAMIDE. [Concomitant]
     Active Substance: CYCLOPHOSPHAMIDE
     Indication: BREAST CANCER METASTATIC
     Route: 065
  7. DOXORUBICIN [Concomitant]
     Active Substance: DOXORUBICIN
     Indication: BREAST CANCER METASTATIC
     Route: 065

REACTIONS (6)
  - Visual impairment [Unknown]
  - Malignant neoplasm progression [Unknown]
  - Headache [Unknown]
  - Blindness [Unknown]
  - Breast cancer metastatic [Unknown]
  - Dizziness [Unknown]
